FAERS Safety Report 9857982 (Version 2)
Quarter: 2014Q4

REPORT INFORMATION
  Report Type: Report from Study
  Country: JP (occurrence: JP)
  Receive Date: 20140131
  Receipt Date: 20141022
  Transmission Date: 20150529
  Serious: Yes (Life-Threatening, Hospitalization, Other)
  Sender: FDA-Public Use
  Company Number: JP-AMGEN-JPNCT2014006827

PATIENT
  Age: 82 Year
  Sex: Male
  Weight: 60 kg

DRUGS (17)
  1. ARTIST [Concomitant]
     Active Substance: CARVEDILOL
     Dosage: UNK
     Route: 048
  2. BLOPRESS [Concomitant]
     Active Substance: CANDESARTAN CILEXETIL
     Dosage: UNK
     Route: 048
  3. NORVASC [Concomitant]
     Active Substance: AMLODIPINE BESYLATE
     Dosage: UNK
     Route: 048
  4. ZYLORIC [Concomitant]
     Active Substance: ALLOPURINOL
     Dosage: UNK
     Route: 048
  5. SOSEGON                            /00052101/ [Concomitant]
     Indication: BRONCHOSCOPY
     Dosage: UNK
     Route: 065
  6. DARBEPOETIN ALFA - KHK [Suspect]
     Active Substance: DARBEPOETIN ALFA
     Indication: NEPHROGENIC ANAEMIA
     Dosage: 40 MUG, Q3WK
     Route: 058
     Dates: start: 20101225
  7. LASIX [Concomitant]
     Active Substance: FUROSEMIDE
     Dosage: UNK
     Route: 048
  8. AZILVA [Concomitant]
     Active Substance: AZILSARTAN KAMEDOXOMIL
     Dosage: UNK
     Route: 048
  9. ATROPINE SULFATE HYDRATE [Concomitant]
     Active Substance: ATROPINE SULFATE
     Indication: BRONCHOSCOPY
     Dosage: UNK
     Route: 065
  10. BAYASPIRIN [Concomitant]
     Active Substance: ASPIRIN
     Dosage: UNK
     Route: 048
  11. CILOSTAZOL. [Concomitant]
     Active Substance: CILOSTAZOL
     Dosage: UNK
     Route: 048
  12. ARGAMATE [Concomitant]
     Active Substance: POLYSTYRENE
     Dosage: UNK
     Route: 048
  13. ATROPINE SULFATE. [Concomitant]
     Active Substance: ATROPINE SULFATE
     Indication: BRONCHOSCOPY
     Dosage: UNK
     Route: 065
  14. SUMILU [Concomitant]
     Active Substance: FELBINAC
     Dosage: UNK
     Route: 062
  15. KAYEXALATE [Concomitant]
     Active Substance: SODIUM POLYSTYRENE SULFONATE
     Dosage: UNK
     Route: 048
  16. FEBURIC [Concomitant]
     Active Substance: FEBUXOSTAT
     Dosage: UNK
     Route: 048
  17. KREMEZIN [Concomitant]
     Active Substance: ACTIVATED CHARCOAL
     Indication: NEPHROSCLEROSIS
     Dosage: UNK
     Route: 048

REACTIONS (12)
  - Pneumonia [Recovered/Resolved]
  - Hypokalaemia [Recovered/Resolved]
  - Rhinitis [Recovered/Resolved]
  - Malaise [Recovered/Resolved]
  - Tendonitis [Recovered/Resolved]
  - Small cell lung cancer [Not Recovered/Not Resolved]
  - Gastroduodenal ulcer [Not Recovered/Not Resolved]
  - Cough [Recovered/Resolved]
  - Bronchial haemorrhage [Recovered/Resolved]
  - Tendonitis [Recovered/Resolved]
  - Hepatic function abnormal [Recovered/Resolved]
  - Decreased appetite [Recovered/Resolved]

NARRATIVE: CASE EVENT DATE: 20110716
